FAERS Safety Report 5982361-5 (Version None)
Quarter: 2008Q4

REPORT INFORMATION
  Report Type: 
  Country: None (occurrence: None)
  Receive Date: 20081208
  Receipt Date: 20081201
  Transmission Date: 20090506
  Serious: Yes (Death, Hospitalization)
  Sender: FDA-Public Use
  Company Number: US-BIOGENIDEC-2008BI029347

PATIENT
  Age: 57 Year
  Sex: Female

DRUGS (16)
  1. TYSABRI [Suspect]
     Indication: MULTIPLE SCLEROSIS
     Route: 042
     Dates: start: 20070228, end: 20080709
  2. INSULIN [Concomitant]
  3. KEFLEX [Concomitant]
     Indication: URINARY TRACT INFECTION
  4. CARBATROL [Concomitant]
  5. BACLOFEN [Concomitant]
  6. PREMARIN [Concomitant]
  7. CYMBALTA [Concomitant]
  8. DIOVAN [Concomitant]
  9. LASIX [Concomitant]
  10. PROTONIX [Concomitant]
  11. SONATA [Concomitant]
  12. VITAMIN D [Concomitant]
  13. URISPAS [Concomitant]
  14. MIRAPEX [Concomitant]
  15. DIFLUCAN [Concomitant]
  16. TERAZOSIN HCL [Concomitant]

REACTIONS (19)
  - ABASIA [None]
  - BACTERIURIA [None]
  - BURNING SENSATION [None]
  - CELLULITIS [None]
  - COMMINUTED FRACTURE [None]
  - DEHYDRATION [None]
  - DRUG INEFFECTIVE [None]
  - HYPOTENSION [None]
  - IMPAIRED HEALING [None]
  - LETHARGY [None]
  - MENTAL STATUS CHANGES [None]
  - MULTIPLE SCLEROSIS RELAPSE [None]
  - NORMOCHROMIC NORMOCYTIC ANAEMIA [None]
  - PANNICULITIS [None]
  - PNEUMONIA [None]
  - PYREXIA [None]
  - RENAL FAILURE ACUTE [None]
  - URINARY TRACT INFECTION [None]
  - WOUND INFECTION PSEUDOMONAS [None]
